FAERS Safety Report 7392966-5 (Version None)
Quarter: 2011Q2

REPORT INFORMATION
  Report Type: 
  Country: None (occurrence: None)
  Receive Date: 20110404
  Receipt Date: 20110218
  Transmission Date: 20111010
  Serious: Yes (Death, Other)
  Sender: FDA-Public Use
  Company Number: US-BAXTER-2010BH017501

PATIENT
  Age: 69 Year
  Sex: Female
  Weight: 126 kg

DRUGS (25)
  1. ATENOLOL [Concomitant]
     Indication: PRODUCT USED FOR UNKNOWN INDICATION
     Route: 048
  2. LIPITOR [Concomitant]
     Indication: PRODUCT USED FOR UNKNOWN INDICATION
     Route: 065
  3. ASPIRIN [Concomitant]
     Route: 048
     Dates: start: 20080616
  4. HEPARIN SODIUM INJECTION [Suspect]
     Route: 040
     Dates: start: 20080624, end: 20080624
  5. MORPHINE [Concomitant]
     Indication: PRODUCT USED FOR UNKNOWN INDICATION
     Route: 042
     Dates: start: 20080616
  6. HEPARIN SODIUM 5,000 UNITS IN DEXTROSE 5% [Suspect]
     Indication: VENOUS THROMBOSIS
     Route: 042
     Dates: start: 20080624, end: 20080627
  7. COUMADIN [Suspect]
     Indication: VENOUS THROMBOSIS
     Route: 048
     Dates: start: 20080619, end: 20080619
  8. NITROGLYCERIN [Concomitant]
     Indication: PRODUCT USED FOR UNKNOWN INDICATION
     Route: 065
  9. PROTONIX [Concomitant]
     Indication: PRODUCT USED FOR UNKNOWN INDICATION
     Route: 048
  10. THEOPHYLLINE [Concomitant]
     Indication: PRODUCT USED FOR UNKNOWN INDICATION
     Route: 042
     Dates: start: 20080616
  11. NOVOLIN 70/30 [Concomitant]
     Indication: PRODUCT USED FOR UNKNOWN INDICATION
     Route: 058
  12. FERREX [Concomitant]
     Indication: PRODUCT USED FOR UNKNOWN INDICATION
     Route: 065
  13. OYSTER SHELL CALCIUM WITH VITAMIN D [Concomitant]
     Indication: PRODUCT USED FOR UNKNOWN INDICATION
     Route: 048
  14. HEPARIN SODIUM INJECTION [Suspect]
     Route: 040
     Dates: start: 20080618, end: 20080618
  15. COUMADIN [Suspect]
     Route: 048
     Dates: start: 20080624, end: 20080624
  16. NOVOLIN 70/30 [Concomitant]
     Route: 058
  17. HEPARIN SODIUM INJECTION [Suspect]
     Route: 040
     Dates: start: 20080621, end: 20080621
  18. HEPARIN SODIUM 5,000 UNITS IN DEXTROSE 5% [Suspect]
     Route: 042
     Dates: start: 20080616, end: 20080601
  19. NEXIUM [Concomitant]
     Indication: PRODUCT USED FOR UNKNOWN INDICATION
     Route: 065
  20. NORMAL SALINE [Concomitant]
     Indication: PRODUCT USED FOR UNKNOWN INDICATION
     Route: 042
     Dates: start: 20080616
  21. HEPARIN SODIUM INJECTION [Suspect]
     Indication: VENOUS THROMBOSIS
     Route: 040
     Dates: start: 20080616, end: 20080616
  22. HEPARIN SODIUM INJECTION [Suspect]
     Route: 040
     Dates: start: 20080625, end: 20080625
  23. COUMADIN [Suspect]
     Route: 048
     Dates: start: 20080625, end: 20080625
  24. ASPIRIN [Concomitant]
     Indication: PRODUCT USED FOR UNKNOWN INDICATION
     Route: 048
  25. SYNTHROID [Concomitant]
     Indication: PRODUCT USED FOR UNKNOWN INDICATION
     Route: 048

REACTIONS (13)
  - RESPIRATORY FAILURE [None]
  - RENAL FAILURE [None]
  - DYSPNOEA [None]
  - URINARY TRACT INFECTION [None]
  - ARRHYTHMIA [None]
  - LACTIC ACIDOSIS [None]
  - ABDOMINAL PAIN LOWER [None]
  - COAGULOPATHY [None]
  - PELVIC HAEMORRHAGE [None]
  - HYPOTENSION [None]
  - RETROPERITONEAL HAEMORRHAGE [None]
  - CHEST PAIN [None]
  - SHOCK [None]
